FAERS Safety Report 7410098-4 (Version None)
Quarter: 2011Q2

REPORT INFORMATION
  Report Type: 
  Country: None (occurrence: None)
  Receive Date: 20110412
  Receipt Date: 20110306
  Transmission Date: 20111010
  Serious: Yes (Other)
  Sender: FDA-Public Use
  Company Number: PHHY2011CA18141

PATIENT
  Sex: Female

DRUGS (6)
  1. ALTACE [Concomitant]
     Dosage: 10 MG, BID
  2. HYDROCHLOROTHIAZIDE [Concomitant]
     Dosage: 12.5 G, UNK
  3. DIURETICS [Concomitant]
  4. ACE INHIBITOR NOS [Concomitant]
  5. BETA BLOCKING AGENTS [Concomitant]
  6. ALISKIREN [Suspect]
     Indication: HYPERTENSION
     Dosage: 150 MG, UNK
     Route: 048
     Dates: start: 20101225, end: 20110101

REACTIONS (4)
  - CONFUSIONAL STATE [None]
  - FALL [None]
  - BLOOD PRESSURE SYSTOLIC DECREASED [None]
  - VERTIGO [None]
